FAERS Safety Report 20779249 (Version 1)
Quarter: 2022Q2

REPORT INFORMATION
  Report Type: Spontaneous
  Country: JP (occurrence: None)
  Receive Date: 20220503
  Receipt Date: 20220503
  Transmission Date: 20220721
  Serious: Yes (Hospitalization)
  Sender: FDA-Public Use
  Company Number: 2022A164044

PATIENT
  Sex: Male

DRUGS (2)
  1. BREZTRI [Suspect]
     Active Substance: BUDESONIDE\FORMOTEROL\GLYCOPYRROLATE
     Dosage: BUDESONIDE:160UG, GLYCOPYRRONIUM BROMIDE:9.0UG, FUMARATE HYDRATE:5.0UG
     Route: 055
     Dates: end: 2022
  2. BREZTRI [Suspect]
     Active Substance: BUDESONIDE\FORMOTEROL\GLYCOPYRROLATE
     Dosage: BUDESONIDE:160UG, GLYCOPYRRONIUM BROMIDE:9.0UG, FUMARATE HYDRATE:5.0UG
     Route: 055
     Dates: start: 2022

REACTIONS (3)
  - Cerebral infarction [Unknown]
  - Cough [Unknown]
  - Off label use [Unknown]

NARRATIVE: CASE EVENT DATE: 20220101
